FAERS Safety Report 7110916-3 (Version None)
Quarter: 2010Q4

REPORT INFORMATION
  Report Type: 
  Country: None (occurrence: None)
  Receive Date: 20101118
  Receipt Date: 20101116
  Transmission Date: 20110411
  Serious: Yes (Hospitalization)
  Sender: FDA-Public Use
  Company Number: GXKR2010DE12879

PATIENT
  Sex: Female
  Weight: 92 kg

DRUGS (9)
  1. FALITHROM (NGX) [Suspect]
     Indication: ATRIAL FIBRILLATION
     Dosage: 5 MG, QD
     Route: 048
  2. LISIHEXAL (NGX) [Suspect]
     Indication: HYPERTENSION
     Dosage: 20 MG, QD
     Route: 048
     Dates: start: 20080306
  3. METOHEXAL (NGX) [Suspect]
     Indication: HYPERTENSION
     Dosage: 95 MG, QD
     Route: 048
     Dates: start: 20081013
  4. SPIRONOLACTONE [Suspect]
     Indication: CARDIAC FAILURE
     Dosage: 12.5 MG, QD
     Route: 048
  5. ACETYLSALICYLIC ACID SRT [Suspect]
     Dosage: 100 MG, QD
     Route: 048
     Dates: start: 20091227
  6. RASILEZ (ALISKIREN FUMARATE) [Suspect]
     Indication: HYPERTENSION
     Dosage: 300 MG, QD
     Dates: start: 20090219
  7. CARMEN [Suspect]
     Indication: HYPERTENSION
     Dosage: 20 MG, QD
     Route: 048
     Dates: start: 20090630
  8. DIGITOXIN [Suspect]
     Indication: CARDIAC FAILURE
     Dosage: 0.07 MG, QD
     Route: 048
     Dates: start: 20091227
  9. CARDULAR [Suspect]
     Dosage: 4 MG, QD
     Route: 048
     Dates: start: 20100203

REACTIONS (4)
  - ATRIAL FIBRILLATION [None]
  - CARDIAC FAILURE [None]
  - EPISTAXIS [None]
  - HYPERTENSIVE CRISIS [None]
